FAERS Safety Report 11942284 (Version 2)
Quarter: 2016Q1

REPORT INFORMATION
  Report Type: Report from Study
  Country: US (occurrence: US)
  Receive Date: 20160125
  Receipt Date: 20160220
  Transmission Date: 20160526
  Serious: No
  Sender: FDA-Public Use
  Company Number: US-AMGEN-USASL2016006886

PATIENT
  Age: 50 Year
  Sex: Female
  Weight: 97.51 kg

DRUGS (3)
  1. ENBREL [Suspect]
     Active Substance: ETANERCEPT
     Indication: PSORIASIS
  2. ENBREL [Suspect]
     Active Substance: ETANERCEPT
     Indication: PSORIATIC ARTHROPATHY
     Dosage: 50 MG, QWK
     Route: 058
  3. METHOTREXATE [Concomitant]
     Active Substance: METHOTREXATE
     Dosage: UNK

REACTIONS (12)
  - Blood chloride decreased [Unknown]
  - Blood potassium decreased [Unknown]
  - Blood glucose increased [Unknown]
  - Alanine aminotransferase increased [Unknown]
  - Blood creatinine decreased [Unknown]
  - Red cell distribution width increased [Unknown]
  - Arthritis [Recovering/Resolving]
  - Peripheral swelling [Unknown]
  - Mean cell haemoglobin concentration increased [Unknown]
  - Pain in extremity [Unknown]
  - Blood urea nitrogen/creatinine ratio increased [Unknown]
  - Blood sodium decreased [Unknown]

NARRATIVE: CASE EVENT DATE: 20150310
